FAERS Safety Report 16024898 (Version 1)
Quarter: 2019Q1

REPORT INFORMATION
  Report Type: Spontaneous
  Country: SE (occurrence: SE)
  Receive Date: 20190301
  Receipt Date: 20190301
  Transmission Date: 20190418
  Serious: Yes (Life-Threatening, Hospitalization, Other)
  Sender: FDA-Public Use
  Company Number: SE-PFIZER INC-2019049997

PATIENT
  Age: 65 Year
  Sex: Female
  Weight: 63 kg

DRUGS (18)
  1. STILNOCT [Concomitant]
     Active Substance: ZOLPIDEM TARTRATE
     Dosage: 5 MG, AS NEEDED
     Dates: start: 20150815
  2. CILAXORAL [Concomitant]
     Active Substance: SODIUM PICOSULFATE
     Dosage: 10 DF, AS NEEDED
     Dates: start: 20180803
  3. OMEPRAZOL [Concomitant]
     Active Substance: OMEPRAZOLE
     Dosage: 4 MG, AS NEEDED
     Dates: start: 20180813
  4. TREO COMP [ACETYLSALICYLIC ACID;APROBARBITAL;CAFFEINE;CODEINE PHOSPHAT [Concomitant]
     Dosage: 1 DF, AS NEEDED
     Dates: start: 20170610
  5. BRICANYL [Concomitant]
     Active Substance: TERBUTALINE SULFATE
     Dosage: UNK UNK, AS NEEDED
     Dates: start: 20180423
  6. GAVISCON [ALGINIC ACID;ALUMINIUM HYDROXIDE] [Concomitant]
     Active Substance: ALGINIC ACID\ALUMINUM HYDROXIDE
     Dosage: UNK UNK, AS NEEDED
     Dates: start: 20180412
  7. PRIMPERAN [Concomitant]
     Active Substance: METOCLOPRAMIDE HYDROCHLORIDE
     Dosage: 10 MG, AS NEEDED
     Dates: start: 20180813
  8. CRESTOR [Concomitant]
     Active Substance: ROSUVASTATIN CALCIUM
     Dosage: 10 MG, 1X/DAY
     Dates: start: 20150527
  9. LEVAXIN [Concomitant]
     Active Substance: LEVOTHYROXINE SODIUM
     Dosage: 100 UG, 1X/DAY
     Dates: start: 20041122
  10. INDERAL [Concomitant]
     Active Substance: PROPRANOLOL HYDROCHLORIDE
     Dosage: 10 MG, AS NEEDED
     Dates: start: 20180710
  11. NAPROSYN [Concomitant]
     Active Substance: NAPROXEN
     Dosage: 250 MG, AS NEEDED
     Dates: start: 20071210
  12. CODEINE [Concomitant]
     Active Substance: CODEINE
     Dosage: 25 MG, AS NEEDED
     Dates: start: 20180727
  13. CALCICHEW D3 [Concomitant]
     Active Substance: CALCIUM\CHOLECALCIFEROL
     Dosage: 500 MG/400 IU
     Dates: start: 20151229
  14. IBRANCE [Suspect]
     Active Substance: PALBOCICLIB
     Indication: BREAST CANCER METASTATIC
     Dosage: 125 MG, ONCE DAILY (FOR DAYS 1-21 DURING A 28 DAY CYCLE)
     Route: 048
     Dates: start: 20181030, end: 20181219
  15. CLOPIDOGREL [Concomitant]
     Active Substance: CLOPIDOGREL BISULFATE
     Dosage: 75 MG, 1X/DAY
     Dates: start: 20140328
  16. ALVEDON [Concomitant]
     Active Substance: ACETAMINOPHEN
     Dosage: 1 G, AS NEEDED
     Dates: start: 20180727
  17. FASLODEX [Concomitant]
     Active Substance: FULVESTRANT
     Dosage: 500 MG, EVERY 4 WEEKS
     Dates: start: 20181125
  18. OMEPRAZOL [Concomitant]
     Active Substance: OMEPRAZOLE
     Dosage: 20 MG, AS NEEDED
     Dates: start: 20170918

REACTIONS (3)
  - Dyspnoea [Unknown]
  - Pyrexia [Unknown]
  - Neutropenia [Recovered/Resolved]

NARRATIVE: CASE EVENT DATE: 20181222
